FAERS Safety Report 25465864 (Version 1)
Quarter: 2025Q2

REPORT INFORMATION
  Report Type: Spontaneous
  Country: GB (occurrence: GB)
  Receive Date: 20250623
  Receipt Date: 20250623
  Transmission Date: 20250716
  Serious: Yes (Hospitalization, Disabling, Other)
  Sender: ABBVIE
  Company Number: None

PATIENT

DRUGS (2)
  1. CITALOPRAM [Suspect]
     Active Substance: CITALOPRAM
     Indication: Affect lability
     Dosage: CURRENTLY AT 4.7MG ONCE A DAY IN LIQUID FORM. HAVE TO REDUCE VERY SLOWLY BY SHALL AMOUNTS OTHERWI...
     Route: 065
  2. CITALOPRAM [Suspect]
     Active Substance: CITALOPRAM
     Indication: Affect lability
     Route: 065

REACTIONS (33)
  - Restlessness [Not Recovered/Not Resolved]
  - Vitreous floaters [Not Recovered/Not Resolved]
  - Depressed mood [Not Recovered/Not Resolved]
  - Feeling abnormal [Not Recovered/Not Resolved]
  - Inflammation [Not Recovered/Not Resolved]
  - Nausea [Unknown]
  - Autonomic nervous system imbalance [Not Recovered/Not Resolved]
  - Diarrhoea [Not Recovered/Not Resolved]
  - Product use in unapproved indication [Unknown]
  - Weight abnormal [Not Recovered/Not Resolved]
  - Anger [Unknown]
  - Akathisia [Not Recovered/Not Resolved]
  - Frustration tolerance decreased [Unknown]
  - Faeces discoloured [Not Recovered/Not Resolved]
  - Headache [Not Recovered/Not Resolved]
  - Gastrointestinal pain [Not Recovered/Not Resolved]
  - Alopecia [Not Recovered/Not Resolved]
  - Head discomfort [Not Recovered/Not Resolved]
  - Fatigue [Not Recovered/Not Resolved]
  - Vision blurred [Not Recovered/Not Resolved]
  - Withdrawal syndrome [Unknown]
  - Feeding disorder [Unknown]
  - Anhedonia [Not Recovered/Not Resolved]
  - Gastrointestinal injury [Not Recovered/Not Resolved]
  - Insomnia [Not Recovered/Not Resolved]
  - Eye injury [Not Recovered/Not Resolved]
  - Ear pain [Not Recovered/Not Resolved]
  - Thirst decreased [Unknown]
  - Weight increased [Not Recovered/Not Resolved]
  - Tinnitus [Not Recovered/Not Resolved]
  - Electric shock [Not Recovered/Not Resolved]
  - Electric shock sensation [Not Recovered/Not Resolved]
  - Haemorrhoids [Not Recovered/Not Resolved]
